FAERS Safety Report 18323774 (Version 1)
Quarter: 2020Q3

REPORT INFORMATION
  Report Type: Spontaneous
  Country: FR (occurrence: FR)
  Receive Date: 20200929
  Receipt Date: 20200929
  Transmission Date: 20201103
  Serious: Yes (Hospitalization)
  Sender: FDA-Public Use
  Company Number: FR-TAKEDA-2020TUS040348

PATIENT
  Age: 55 Year
  Sex: Male

DRUGS (1)
  1. ALUNBRIG [Suspect]
     Active Substance: BRIGATINIB
     Indication: LUNG ADENOCARCINOMA
     Dosage: 90 MILLIGRAM, QD
     Route: 048
     Dates: start: 20200722, end: 20200725

REACTIONS (4)
  - Diarrhoea [Recovered/Resolved]
  - Transaminases increased [Recovering/Resolving]
  - Cough [Recovered/Resolved]
  - Cholestasis [Not Recovered/Not Resolved]

NARRATIVE: CASE EVENT DATE: 20200722
